FAERS Safety Report 5576421-0 (Version None)
Quarter: 2007Q4

REPORT INFORMATION
  Report Type: 
  Country: None (occurrence: None)
  Receive Date: 20071130
  Receipt Date: 20070924
  Transmission Date: 20080405
  Serious: No
  Sender: FDA-Public Use
  Company Number: US200709004409

PATIENT
  Age: 45 Year
  Sex: Female

DRUGS (1)
  1. BYETTA [Suspect]
     Dosage: 5 UG SUBCUTANEOUS
     Route: 058

REACTIONS (3)
  - EYE SWELLING [None]
  - FLATULENCE [None]
  - STOMACH DISCOMFORT [None]
